FAERS Safety Report 7568864-0 (Version None)
Quarter: 2011Q2

REPORT INFORMATION
  Report Type: 
  Country: None (occurrence: None)
  Receive Date: 20110623
  Receipt Date: 20110621
  Transmission Date: 20111010
  Serious: Yes (Other)
  Sender: FDA-Public Use
  Company Number: US-PFIZER INC-2011124969

PATIENT
  Sex: Female

DRUGS (4)
  1. NORTRIPTYLINE HYDROCHLORIDE [Suspect]
     Dosage: UNK
  2. PRIMIDONE [Suspect]
     Dosage: UNK
  3. LYRICA [Suspect]
     Indication: NEUROPATHY PERIPHERAL
     Dosage: 600 MG, PER DAY
  4. IMIPRAMINE [Suspect]
     Dosage: UNK

REACTIONS (1)
  - NEUROPATHY PERIPHERAL [None]
